FAERS Safety Report 4831426-X (Version None)
Quarter: 2005Q4

REPORT INFORMATION
  Report Type: 
  Country: None (occurrence: None)
  Receive Date: 20051116
  Receipt Date: 20051108
  Transmission Date: 20060501
  Serious: Yes (Congenital Anomaly)
  Sender: FDA-Public Use
  Company Number: 2005-05-1486

PATIENT
  Sex: 0

DRUGS (2)
  1. PEG-INTRON [Suspect]
     Dosage: 150 MCG/WK SUBCUTANEOUS
     Route: 058
     Dates: end: 20050325
  2. RIBAVIRIN [Suspect]
     Dosage: 1200 MG/DAY ORAL
     Route: 048
     Dates: end: 20050401

REACTIONS (3)
  - DRUG EXPOSURE DURING PREGNANCY [None]
  - MACROCEPHALY [None]
  - TRANSMISSION OF DRUG VIA SEMEN [None]
